FAERS Safety Report 6046459-8 (Version None)
Quarter: 2009Q1

REPORT INFORMATION
  Report Type: 
  Country: None (occurrence: None)
  Receive Date: 20090121
  Receipt Date: 20090121
  Transmission Date: 20090719
  Serious: Yes (Death)
  Sender: FDA-Public Use
  Company Number: None

PATIENT
  Age: 80 Year
  Sex: Female
  Weight: 48.0813 kg

DRUGS (3)
  1. REGLAN [Suspect]
     Indication: BARRETT'S OESOPHAGUS
     Dosage: 5 MG 1/2 B/F MEALS/BED PO
     Route: 048
     Dates: start: 20080301, end: 20081021
  2. REGLAN [Suspect]
     Indication: NAUSEA
     Dosage: 5 MG 1/2 B/F MEALS/BED PO
     Route: 048
     Dates: start: 20080301, end: 20081021
  3. REGLAN [Suspect]
     Indication: VOMITING
     Dosage: 5 MG 1/2 B/F MEALS/BED PO
     Route: 048
     Dates: start: 20080301, end: 20081021

REACTIONS (17)
  - APHASIA [None]
  - BLOOD PRESSURE FLUCTUATION [None]
  - CARDIAC FAILURE [None]
  - CONFUSIONAL STATE [None]
  - CONVULSION [None]
  - DEPRESSION [None]
  - INFECTION [None]
  - INSOMNIA [None]
  - LOSS OF CONSCIOUSNESS [None]
  - NECK PAIN [None]
  - PARALYSIS [None]
  - POSTURE ABNORMAL [None]
  - RESPIRATORY FAILURE [None]
  - RESTLESSNESS [None]
  - TREMOR [None]
  - URINARY INCONTINENCE [None]
  - WHITE BLOOD CELL COUNT INCREASED [None]
